FAERS Safety Report 9476332 (Version 1)
Quarter: 2013Q3

REPORT INFORMATION
  Report Type: Spontaneous
  Country: US (occurrence: None)
  Receive Date: 20130823
  Receipt Date: 20130823
  Transmission Date: 20140515
  Serious: Yes (Hospitalization)
  Sender: FDA-Public Use
  Company Number: None

PATIENT
  Age: 63 Year
  Sex: Female

DRUGS (1)
  1. ORENCIA [Suspect]
     Indication: RHEUMATOID ARTHRITIS
     Dosage: 125MG WEEKLY SUBCUTANEOUSLY
     Route: 058
     Dates: start: 20120724

REACTIONS (4)
  - Gastrointestinal obstruction [None]
  - Asthenia [None]
  - Stress [None]
  - Blood pressure inadequately controlled [None]
